FAERS Safety Report 8168198-X (Version None)
Quarter: 2012Q1

REPORT INFORMATION
  Report Type: 
  Country: None (occurrence: None)
  Receive Date: 20120227
  Receipt Date: 20120222
  Transmission Date: 20120608
  Serious: Yes (Death, Hospitalization)
  Sender: FDA-Public Use
  Company Number: PHHO2012ZA000500

PATIENT
  Sex: Male

DRUGS (2)
  1. IRON SUPPLEMENTS [Concomitant]
     Dosage: UNK
     Dates: start: 20110610
  2. AFINITOR [Suspect]
     Indication: METASTATIC RENAL CELL CARCINOMA
     Dosage: 5 MG, ALTERNATE DAYS
     Route: 048
     Dates: start: 20111012

REACTIONS (3)
  - ASTHENIA [None]
  - DEHYDRATION [None]
  - HYPOCHROMIC ANAEMIA [None]
